FAERS Safety Report 10173654 (Version 1)
Quarter: 2014Q2

REPORT INFORMATION
  Report Type: Spontaneous
  Country: US (occurrence: None)
  Receive Date: 20140514
  Receipt Date: 20140514
  Transmission Date: 20141212
  Serious: No
  Sender: FDA-Public Use
  Company Number: None

PATIENT
  Age: 40 Year
  Sex: Female

DRUGS (1)
  1. TECFIDERA 120 MG BIOGEN IDEC [Suspect]
     Indication: MULTIPLE SCLEROSIS
     Dosage: 120MG, DAILY FOR 2 WEEKS, PO?
     Route: 048
     Dates: start: 20140502, end: 20140508

REACTIONS (3)
  - Constipation [None]
  - Lacrimation increased [None]
  - Abdominal pain [None]
